FAERS Safety Report 4873029-7 (Version None)
Quarter: 2005Q4

REPORT INFORMATION
  Report Type: 
  Country: None (occurrence: None)
  Receive Date: 20051201
  Receipt Date: 20050813
  Transmission Date: 20060501
  Serious: No
  Sender: FDA-Public Use
  Company Number: 2005PV001223

PATIENT
  Age: 54 Year
  Sex: Male
  Weight: 129.2752 kg

DRUGS (9)
  1. BYETTA [Suspect]
     Indication: DIABETES MELLITUS NON-INSULIN-DEPENDENT
     Dosage: 5 MCG; BID; SC
     Route: 058
     Dates: start: 20050809
  2. LANTUS [Concomitant]
  3. HUMALOG [Concomitant]
  4. GLUCOPHAGE [Concomitant]
  5. ACTOS [Concomitant]
  6. GLUCOTROL [Concomitant]
  7. ZOCOR [Concomitant]
  8. ZESTORESTIC ^HAESSLE^ [Concomitant]
  9. VERAPAMIL [Concomitant]

REACTIONS (1)
  - EARLY SATIETY [None]
